FAERS Safety Report 9954230 (Version 1)
Quarter: 2014Q1

REPORT INFORMATION
  Report Type: Report from Study
  Country: US (occurrence: US)
  Receive Date: 20140304
  Receipt Date: 20140304
  Transmission Date: 20141002
  Serious: No
  Sender: FDA-Public Use
  Company Number: US-ABBVIE-13P-163-1074131-00

PATIENT
  Age: 43 Year
  Sex: Male

DRUGS (5)
  1. HUMIRA [Suspect]
     Indication: COLITIS ULCERATIVE
     Dates: start: 20130304
  2. SULFASALAZINE [Concomitant]
     Indication: COLITIS ULCERATIVE
     Dosage: PILLS
  3. FOLIC ACID [Concomitant]
     Indication: VITAMIN SUPPLEMENTATION
     Dosage: 1MG DAILY
  4. NEXIUM [Concomitant]
     Indication: DYSPEPSIA
     Dosage: 40MG DAILY
  5. AVALIDE [Concomitant]
     Indication: BLOOD PRESSURE
     Dosage: 150.12.5MG DAILY

REACTIONS (1)
  - Injection site reaction [Recovered/Resolved]
